FAERS Safety Report 10019044 (Version 2)
Quarter: 2014Q2

REPORT INFORMATION
  Report Type: Spontaneous
  Country: DE (occurrence: DE)
  Receive Date: 20140318
  Receipt Date: 20140418
  Transmission Date: 20141212
  Serious: Yes (Hospitalization)
  Sender: FDA-Public Use
  Company Number: DE-BRISTOL-MYERS SQUIBB COMPANY-20477584

PATIENT
  Sex: Female
  Weight: 2.28 kg

DRUGS (2)
  1. ABILIFY [Suspect]
     Route: 064
     Dates: start: 20111111, end: 20120717
  2. ZYPREXA [Suspect]
     Route: 064
     Dates: start: 20111111, end: 20120717

REACTIONS (3)
  - Temperature regulation disorder [Unknown]
  - Premature baby [Unknown]
  - Foetal exposure during pregnancy [Unknown]
